FAERS Safety Report 9436283 (Version 2)
Quarter: 2013Q3

REPORT INFORMATION
  Report Type: Spontaneous
  Country: BE (occurrence: BE)
  Receive Date: 20130802
  Receipt Date: 20130821
  Transmission Date: 20140515
  Serious: Yes (Other)
  Sender: FDA-Public Use
  Company Number: BE-AMGEN-BELSP2013053517

PATIENT
  Age: 56 Year
  Sex: Male

DRUGS (3)
  1. NPLATE [Suspect]
     Indication: BONE MARROW FAILURE
     Dosage: 0.4 MUG/KG, QWK
     Route: 058
  2. EPREX [Concomitant]
     Dosage: 40000 UNK, QWK
     Route: 058
  3. NEUPOGEN [Concomitant]
     Dosage: 15 MG, Q2WK
     Route: 058

REACTIONS (4)
  - Sudden hearing loss [Not Recovered/Not Resolved]
  - Headache [Recovered/Resolved]
  - Paraesthesia [Recovered/Resolved]
  - Ear pain [Recovered/Resolved]
